FAERS Safety Report 24216066 (Version 1)
Quarter: 2024Q3

REPORT INFORMATION
  Report Type: Spontaneous
  Country: CA (occurrence: CA)
  Receive Date: 20240816
  Receipt Date: 20240816
  Transmission Date: 20241017
  Serious: Yes (Death, Life-Threatening, Hospitalization, Other)
  Sender: AMGEN
  Company Number: CA-AMGEN-CANSP2024159854

PATIENT

DRUGS (1)
  1. BEVACIZUMAB [Suspect]
     Active Substance: BEVACIZUMAB
     Indication: Metastases to peritoneum
     Dosage: UNK
     Route: 065

REACTIONS (12)
  - Death [Fatal]
  - Post procedural complication [Unknown]
  - Colorectal cancer metastatic [Unknown]
  - Deep vein thrombosis [Unknown]
  - Anastomotic leak [Unknown]
  - Postoperative wound infection [Unknown]
  - Wound dehiscence [Unknown]
  - Postoperative ileus [Unknown]
  - Postoperative wound infection [Unknown]
  - Intra-abdominal fluid collection [Unknown]
  - Toxicity to various agents [Unknown]
  - Therapy partial responder [Unknown]
